FAERS Safety Report 19604248 (Version 2)
Quarter: 2021Q3

REPORT INFORMATION
  Report Type: Report from Study
  Country: None (occurrence: AR)
  Receive Date: 20210723
  Receipt Date: 20210923
  Transmission Date: 20211014
  Serious: Yes (Hospitalization, Other)
  Sender: FDA-Public Use
  Company Number: AR-ABBVIE-21K-007-4005309-00

PATIENT
  Age: 56 Year
  Sex: Female

DRUGS (1)
  1. HUMIRA [Suspect]
     Active Substance: ADALIMUMAB
     Indication: RHEUMATOID ARTHRITIS
     Route: 058
     Dates: start: 20150318

REACTIONS (6)
  - Multiple fractures [Not Recovered/Not Resolved]
  - Radius fracture [Recovering/Resolving]
  - Endocarditis [Recovered/Resolved]
  - Pneumonia [Recovered/Resolved]
  - Thermal burn [Not Recovered/Not Resolved]
  - Pulmonary oedema [Recovered/Resolved]

NARRATIVE: CASE EVENT DATE: 202107
